FAERS Safety Report 20608326 (Version 1)
Quarter: 2022Q1

REPORT INFORMATION
  Report Type: Spontaneous
  Country: US (occurrence: US)
  Receive Date: 20220317
  Receipt Date: 20220317
  Transmission Date: 20220424
  Serious: No
  Sender: FDA-Public Use
  Company Number: US-MYLANLABS-2022M1015570

PATIENT
  Sex: Male
  Weight: 129.27 kg

DRUGS (2)
  1. SEMGLEE [Suspect]
     Active Substance: INSULIN GLARGINE
     Indication: Diabetes mellitus
     Dosage: UNK (100 IU/ML)
     Route: 058
     Dates: start: 20220115
  2. NOVOLOG [Concomitant]
     Active Substance: INSULIN ASPART
     Dosage: UNK, PM (100 U/ML (20 UNITS AT MEAL TIME)

REACTIONS (2)
  - Incorrect dose administered [Unknown]
  - Device issue [Unknown]
